FAERS Safety Report 8440272-X (Version None)
Quarter: 2012Q2

REPORT INFORMATION
  Report Type: 
  Country: None (occurrence: None)
  Receive Date: 20120615
  Receipt Date: 20120607
  Transmission Date: 20120825
  Serious: Yes (Hospitalization, Disabling)
  Sender: FDA-Public Use
  Company Number: JP-PFIZER INC-2011235862

PATIENT
  Age: 69 Year
  Sex: Male
  Weight: 63.45 kg

DRUGS (33)
  1. PURSENNID [Concomitant]
     Indication: CONSTIPATION
     Dosage: 24 MG, AS NEEDED
     Route: 048
     Dates: start: 20101103
  2. VEEN D [Concomitant]
     Indication: FLUID REPLACEMENT
     Dosage: 500 ML, 2X/DAY
     Route: 042
     Dates: start: 20110927, end: 20110927
  3. AMLODIPINE [Concomitant]
     Indication: HYPERTENSION
     Dosage: 5 MG, 1X/DAY
     Route: 048
     Dates: start: 20110711, end: 20110717
  4. LAC B [Concomitant]
     Indication: DIARRHOEA
     Dosage: 2 G, 3X/DAY
     Route: 048
     Dates: start: 20110326
  5. BLINDED AXITINIB [Suspect]
     Indication: METASTATIC RENAL CELL CARCINOMA
     Dosage: 2 MG, 2X/DAY
     Route: 048
     Dates: start: 20101214, end: 20110714
  6. OXYCODONE HYDROCHLORIDE [Suspect]
     Dosage: 10 MG, AS NEEDED
     Route: 048
     Dates: start: 20110506
  7. TIZANIDINE HYDROCHLORIDE [Concomitant]
     Indication: PAIN
     Dosage: 1 MG, 3X/DAY
     Route: 048
     Dates: start: 20110826
  8. DECADRON [Suspect]
     Dosage: 0.5 MG, 1X/DAY
     Route: 048
     Dates: start: 20110825, end: 20111013
  9. OXYCONTIN [Suspect]
     Dosage: 50 MG, 2X/DAY
     Route: 048
     Dates: start: 20110617
  10. TELEMINSOFT [Concomitant]
     Indication: CONSTIPATION
     Dosage: 4 MG, AS NEEDED
     Dates: start: 20101109
  11. ACETAMINOPHEN [Concomitant]
     Indication: PYREXIA
     Dosage: 2000 MG, 1X/DAY
     Route: 048
     Dates: start: 20110608, end: 20110916
  12. MOBIC [Concomitant]
     Indication: INTERVERTEBRAL DISC PROTRUSION
     Dosage: 10 MG, 1X/DAY
     Route: 048
     Dates: start: 20101104, end: 20110916
  13. AXITINIB [Suspect]
     Indication: METASTATIC RENAL CELL CARCINOMA
     Dosage: 5 MG, 2X/DAY
     Route: 048
     Dates: start: 20101116, end: 20110714
  14. AXITINIB [Suspect]
     Dosage: 5 MG, 2X/DAY
     Route: 048
     Dates: start: 20110729, end: 20110818
  15. PLACEBO [Suspect]
     Indication: METASTATIC RENAL CELL CARCINOMA
     Dosage: 2 MG, 2X/DAY
     Route: 048
     Dates: start: 20101214, end: 20110714
  16. DECADRON [Suspect]
     Dosage: 1 MG, 1X/DAY
     Route: 048
     Dates: start: 20111014, end: 20111028
  17. HIRUDOID [Concomitant]
     Indication: PALMAR-PLANTAR ERYTHRODYSAESTHESIA SYNDROME
     Dosage: OPTIMAL DOSE, 3 OR 4 TIMES/DAY
     Dates: start: 20101118
  18. AXITINIB [Suspect]
     Dosage: 5 MG, 2X/DAY
     Route: 048
     Dates: start: 20110827, end: 20110926
  19. BLINDED NO SUBJECT DRUG [Suspect]
     Indication: METASTATIC RENAL CELL CARCINOMA
     Dosage: 2 MG, 2X/DAY
     Route: 048
     Dates: start: 20101214, end: 20110714
  20. DECADRON [Suspect]
     Indication: PYREXIA
     Dosage: UNK MG, 1X/DAY
     Route: 048
     Dates: start: 20110618, end: 20110824
  21. OXYCODONE HYDROCHLORIDE [Suspect]
     Indication: PAIN
     Dosage: 5 MG, AS NEEDED
     Route: 048
     Dates: start: 20101111, end: 20110505
  22. OLMESARTAN MEDOXOMIL [Concomitant]
     Indication: HYPERTENSION
     Dosage: 20 MG, 1X/DAY
     Route: 048
     Dates: start: 20110831
  23. DAI-KENCHU-TO [Concomitant]
     Indication: ABDOMINAL DISTENSION
     Dosage: 1 DF, 3X/DAY
     Route: 048
     Dates: start: 20110729
  24. NORVASC [Concomitant]
     Indication: HYPERTENSION
     Dosage: 10 MG, 1X/DAY
     Route: 048
     Dates: start: 20110920
  25. DECADRON [Suspect]
     Dosage: 2 MG, 1X/DAY
     Route: 048
     Dates: start: 20111029
  26. OXYCONTIN [Suspect]
     Indication: PAIN
     Dosage: 40 MG, 2X/DAY
     Route: 048
     Dates: start: 20110507, end: 20110616
  27. MAGNESIUM OXIDE [Concomitant]
     Indication: CONSTIPATION
     Dosage: 0.5 G, 3X/DAY
     Route: 048
     Dates: start: 20101103
  28. LANSOPRAZOLE [Concomitant]
     Indication: GASTRITIS
     Dosage: 15 MG, 1X/DAY
     Route: 048
     Dates: start: 20101112
  29. HIRUDOID [Concomitant]
     Indication: PROPHYLAXIS
  30. GASMOTIN [Concomitant]
     Indication: DECREASED APPETITE
     Dosage: 5 MG, 3X/DAY
     Route: 048
     Dates: start: 20110401
  31. MUCOSTA [Concomitant]
     Indication: GASTRIC MUCOSAL LESION
     Dosage: 100 MG, 3X/DAY
     Route: 048
     Dates: start: 20110628
  32. PRORENAL [Concomitant]
     Indication: PAIN
     Dosage: 5 UG, 3X/DAY
     Route: 048
     Dates: start: 20110826
  33. ZOMETA [Concomitant]
     Indication: RENAL CELL CARCINOMA
     Dosage: 4 MG, 1X/DAY
     Route: 042
     Dates: start: 20110922, end: 20110922

REACTIONS (5)
  - VOMITING [None]
  - PYREXIA [None]
  - ABDOMINAL DISTENSION [None]
  - ENTEROCOLITIS [None]
  - EXTRADURAL ABSCESS [None]
